FAERS Safety Report 21452402 (Version 2)
Quarter: 2022Q4

REPORT INFORMATION
  Report Type: Report from Study
  Country: FR (occurrence: None)
  Receive Date: 20221013
  Receipt Date: 20221215
  Transmission Date: 20230113
  Serious: Yes (Death, Hospitalization)
  Sender: FDA-Public Use
  Company Number: FR-ROCHE-3193883

PATIENT
  Age: 79 Year
  Sex: Male

DRUGS (9)
  1. ATEZOLIZUMAB [Suspect]
     Active Substance: ATEZOLIZUMAB
     Indication: Non-small cell lung cancer
     Dosage: ON 16/SEP/2022, DATE OF LAST ADMINISTRATION OF STUDY TREATMENT
     Route: 065
     Dates: start: 20220812
  2. CARBOPLATIN [Suspect]
     Active Substance: CARBOPLATIN
     Indication: Non-small cell lung cancer
     Dosage: AUC 6 ?ON 16/SEP/2022, DATE OF LAST ADMINISTRATION OF STUDY TREATMENT
     Route: 065
     Dates: start: 20220812
  3. PACLITAXEL [Suspect]
     Active Substance: PACLITAXEL
     Indication: Non-small cell lung cancer
     Dosage: ON 16/SEP/2022, DATE OF LAST ADMINISTRATION OF STUDY TREATMENT
     Route: 065
     Dates: start: 20220812
  4. NEBIVOLOL [Concomitant]
     Active Substance: NEBIVOLOL
  5. AMLODIPINE BESYLATE [Concomitant]
     Active Substance: AMLODIPINE BESYLATE
  6. URAPIDIL [Concomitant]
     Active Substance: URAPIDIL
  7. PLAVIX [Concomitant]
     Active Substance: CLOPIDOGREL BISULFATE
  8. TAHOR [Concomitant]
     Active Substance: ATORVASTATIN CALCIUM
  9. RABEPRAZOLE SODIUM [Concomitant]
     Active Substance: RABEPRAZOLE SODIUM

REACTIONS (1)
  - COVID-19 [Fatal]

NARRATIVE: CASE EVENT DATE: 20221003
